FAERS Safety Report 5394566-5 (Version None)
Quarter: 2007Q3

REPORT INFORMATION
  Report Type: 
  Country: None (occurrence: None)
  Receive Date: 20070723
  Receipt Date: 20060829
  Transmission Date: 20080115
  Serious: Yes (Hospitalization)
  Sender: FDA-Public Use
  Company Number: GB-SANOFI-SYNTHELABO-A01200607120

PATIENT
  Age: 63 Year
  Sex: Male
  Weight: 84 kg

DRUGS (2)
  1. FLAVOXATE HYDROCHLORIDE COATED TAB [Concomitant]
     Indication: BLADDER OBSTRUCTION
     Route: 065
     Dates: start: 19970226
  2. XATRAL SR [Suspect]
     Indication: BLADDER OBSTRUCTION
     Route: 048
     Dates: start: 19970522, end: 19970530

REACTIONS (1)
  - OEDEMA GENITAL [None]
